FAERS Safety Report 20280171 (Version 1)
Quarter: 2022Q1

REPORT INFORMATION
  Report Type: Spontaneous
  Country: FR (occurrence: FR)
  Receive Date: 20220103
  Receipt Date: 20220103
  Transmission Date: 20220424
  Serious: Yes (Other)
  Sender: FDA-Public Use
  Company Number: ES-PFIZER INC-202101612272

PATIENT
  Age: 37 Year
  Sex: Male

DRUGS (9)
  1. CISPLATIN [Suspect]
     Active Substance: CISPLATIN
     Indication: Squamous cell carcinoma of skin
     Dosage: UNK(50 MG/M2, SINGLE ON DAY 1  )
  2. CISPLATIN [Suspect]
     Active Substance: CISPLATIN
     Indication: Xeroderma pigmentosum
     Dosage: UNK, CYCLIC
  3. CISPLATIN [Suspect]
     Active Substance: CISPLATIN
     Indication: Skin cancer
  4. FLUOROURACIL [Suspect]
     Active Substance: FLUOROURACIL
     Indication: Xeroderma pigmentosum
     Dosage: UNK(1000 MG/M2, CYCLIC (DAYS 1-3, EVERY TWO WEEKS) )
     Route: 042
  5. FLUOROURACIL [Suspect]
     Active Substance: FLUOROURACIL
     Indication: Squamous cell carcinoma of skin
     Dosage: UNK, CYCLE
     Route: 042
  6. FLUOROURACIL [Suspect]
     Active Substance: FLUOROURACIL
     Indication: Skin cancer
  7. VINORELBINE [Suspect]
     Active Substance: VINORELBINE TARTRATE
     Indication: Xeroderma pigmentosum
     Dosage: UNK
  8. VINORELBINE [Suspect]
     Active Substance: VINORELBINE TARTRATE
     Indication: Squamous cell carcinoma of skin
  9. VINORELBINE [Suspect]
     Active Substance: VINORELBINE TARTRATE
     Indication: Skin cancer

REACTIONS (4)
  - Thrombocytopenia [Recovered/Resolved]
  - Leukopenia [Recovered/Resolved]
  - Neoplasm progression [Unknown]
  - Off label use [Unknown]
